FAERS Safety Report 6257501-3 (Version None)
Quarter: 2009Q3

REPORT INFORMATION
  Report Type: 
  Country: None (occurrence: None)
  Receive Date: 20090706
  Receipt Date: 20090625
  Transmission Date: 20100115
  Serious: Yes (Hospitalization)
  Sender: FDA-Public Use
  Company Number: GR-AVENTIS-200915963GDDC

PATIENT
  Age: 57 Year
  Sex: Male

DRUGS (6)
  1. DOCETAXEL [Suspect]
     Route: 042
     Dates: start: 20090513, end: 20090513
  2. CISPLATIN [Suspect]
     Route: 042
     Dates: start: 20090513, end: 20090513
  3. ALOXI [Concomitant]
  4. DEXATON                            /00016002/ [Concomitant]
  5. EMEND [Concomitant]
     Dosage: DOSE QUANTITY: 3
  6. ZOMETA [Concomitant]

REACTIONS (2)
  - FATIGUE [None]
  - HYPERCALCAEMIA [None]
